FAERS Safety Report 4725480-3 (Version None)
Quarter: 2005Q3

REPORT INFORMATION
  Report Type: 
  Country: None (occurrence: None)
  Receive Date: 20050727
  Receipt Date: 20050621
  Transmission Date: 20060218
  Serious: Yes (Hospitalization, Other)
  Sender: FDA-Public Use
  Company Number: PHNU2005DE02332

PATIENT
  Age: 68 Year
  Sex: Male

DRUGS (2)
  1. LAMISIL [Suspect]
     Indication: ONYCHOMYCOSIS
     Dosage: 250 MG, QD
     Route: 048
     Dates: start: 20050601, end: 20050613
  2. LAMISIL [Suspect]
     Dosage: 125 MG, QD
     Route: 048
     Dates: start: 20050614, end: 20050615

REACTIONS (40)
  - ABDOMINAL DISTENSION [None]
  - AGEUSIA [None]
  - ALANINE AMINOTRANSFERASE ABNORMAL [None]
  - ANOREXIA [None]
  - ARTHRALGIA [None]
  - BACK PAIN [None]
  - BLOOD CHOLINESTERASE DECREASED [None]
  - BLOOD GLUCOSE INCREASED [None]
  - BLOOD IMMUNOGLOBULIN A INCREASED [None]
  - BLOOD IMMUNOGLOBULIN E DECREASED [None]
  - BLOOD IMMUNOGLOBULIN G INCREASED [None]
  - BLOOD PHOSPHORUS DECREASED [None]
  - C-REACTIVE PROTEIN INCREASED [None]
  - CHILLS [None]
  - CONSTIPATION [None]
  - DYSPHAGIA [None]
  - EOSINOPHIL COUNT DECREASED [None]
  - ERYTHEMA NODOSUM [None]
  - EYE PAIN [None]
  - FATIGUE [None]
  - FUNGAL INFECTION [None]
  - HAEMATOCRIT DECREASED [None]
  - HEPATIC STEATOSIS [None]
  - HEPATITIS A ANTIBODY POSITIVE [None]
  - HIGH DENSITY LIPOPROTEIN DECREASED [None]
  - HYPERGAMMAGLOBULINAEMIA [None]
  - IMMUNOLOGY TEST [None]
  - INFLAMMATION [None]
  - LIGHT CHAIN ANALYSIS INCREASED [None]
  - MYALGIA [None]
  - PAIN [None]
  - PLATELET COUNT INCREASED [None]
  - PSORIASIS [None]
  - PYREXIA [None]
  - RASH MACULAR [None]
  - RASH PUSTULAR [None]
  - RED BLOOD CELL SEDIMENTATION RATE INCREASED [None]
  - THROAT IRRITATION [None]
  - WEIGHT DECREASED [None]
  - WHITE BLOOD CELL COUNT INCREASED [None]
